FAERS Safety Report 23361994 (Version 1)
Quarter: 2024Q1

REPORT INFORMATION
  Report Type: Spontaneous
  Country: DE (occurrence: DE)
  Receive Date: 20240103
  Receipt Date: 20240103
  Transmission Date: 20240410
  Serious: Yes (Death)
  Sender: FDA-Public Use
  Company Number: DE-Stemline Therapeutics, Inc.-2023ST005348

PATIENT
  Sex: Female
  Weight: 89 kg

DRUGS (1)
  1. ELZONRIS [Suspect]
     Active Substance: TAGRAXOFUSP-ERZS
     Indication: Blastic plasmacytoid dendritic cell neoplasia
     Route: 042
     Dates: start: 20210903, end: 20211210

REACTIONS (3)
  - Death [Fatal]
  - Neoplasm recurrence [Fatal]
  - Drug ineffective [Fatal]
